FAERS Safety Report 8387335-5 (Version None)
Quarter: 2012Q2

REPORT INFORMATION
  Report Type: 
  Country: None (occurrence: None)
  Receive Date: 20120525
  Receipt Date: 20120521
  Transmission Date: 20120825
  Serious: Yes (Hospitalization)
  Sender: FDA-Public Use
  Company Number: US-BAYER-2012-051040

PATIENT
  Age: 40 Year
  Sex: Female

DRUGS (1)
  1. BEYAZ [Suspect]
     Indication: ENDOMETRIOSIS

REACTIONS (1)
  - DEEP VEIN THROMBOSIS [None]
